FAERS Safety Report 10725223 (Version 1)
Quarter: 2015Q1

REPORT INFORMATION
  Report Type: Spontaneous
  Country: CN (occurrence: CN)
  Receive Date: 20150120
  Receipt Date: 20150120
  Transmission Date: 20150721
  Serious: Yes (Other)
  Sender: FDA-Public Use
  Company Number: CN-JNJFOC-20150103622

PATIENT
  Age: 12 Month
  Sex: Female
  Weight: 8 kg

DRUGS (2)
  1. TYLENOL [Suspect]
     Active Substance: ACETAMINOPHEN
     Indication: PYREXIA
     Route: 048
     Dates: start: 20140816, end: 20140819
  2. XIAO^ER ANFE HUANG NAMIN [Suspect]
     Active Substance: HERBALS
     Indication: PYREXIA
     Route: 048
     Dates: start: 20140816, end: 20140819

REACTIONS (1)
  - Leukopenia [Recovered/Resolved]

NARRATIVE: CASE EVENT DATE: 20140819
